FAERS Safety Report 21543470 (Version 1)
Quarter: 2022Q4

REPORT INFORMATION
  Report Type: Spontaneous
  Country: FR (occurrence: FR)
  Receive Date: 20221102
  Receipt Date: 20221102
  Transmission Date: 20230113
  Serious: Yes (Other)
  Sender: FDA-Public Use
  Company Number: FR-AMGEN-FRASP2022148162

PATIENT
  Age: 53 Year
  Sex: Female

DRUGS (4)
  1. ADALIMUMAB [Suspect]
     Active Substance: ADALIMUMAB
     Indication: Chorioretinitis
     Dosage: 40 MILLIGRAM, BIWEEKLY, 40 MILLIGRAM, Q2WK
     Route: 058
     Dates: start: 202004
  2. IPILIMUMAB [Concomitant]
     Active Substance: IPILIMUMAB
     Route: 065
  3. NIVOLUMAB [Concomitant]
     Active Substance: NIVOLUMAB
     Route: 065
  4. METHOTREXATE [Concomitant]
     Active Substance: METHOTREXATE
     Dosage: 15 MILLIGRAM, BIWEEKLY, 15 MILLIGRAM, Q2WK
     Route: 058
     Dates: start: 202011

REACTIONS (1)
  - Metastatic malignant melanoma [Recovered/Resolved]

NARRATIVE: CASE EVENT DATE: 20200601
